FAERS Safety Report 25225437 (Version 2)
Quarter: 2025Q3

REPORT INFORMATION
  Report Type: Spontaneous
  Country: US (occurrence: US)
  Receive Date: 20250422
  Receipt Date: 20250730
  Transmission Date: 20251021
  Serious: Yes (Death, Life-Threatening, Congenital Anomaly, Other)
  Sender: OXFORD PHARMACEUTICALS, LLC
  Company Number: US-Oxford Pharmaceuticals, LLC-2175337

PATIENT
  Age: 96 Year
  Sex: Female

DRUGS (11)
  1. METHOCARBAMOL [Suspect]
     Active Substance: METHOCARBAMOL
     Indication: Product used for unknown indication
  2. AMBIEN [Suspect]
     Active Substance: ZOLPIDEM TARTRATE
  3. DIPHENHYDRAMINE [Suspect]
     Active Substance: DIPHENHYDRAMINE
  4. ATIVAN [Suspect]
     Active Substance: LORAZEPAM
  5. ROZEREM [Suspect]
     Active Substance: RAMELTEON
  6. RESTORIL [Suspect]
     Active Substance: TEMAZEPAM
  7. SONATA [Suspect]
     Active Substance: ZALEPLON
  8. LUNESTA [Suspect]
     Active Substance: ESZOPICLONE
  9. VALIUM [Suspect]
     Active Substance: DIAZEPAM
  10. MELATONIN [Suspect]
     Active Substance: MELATONIN
  11. XANAX [Suspect]
     Active Substance: ALPRAZOLAM

REACTIONS (3)
  - Cardiac arrest [Fatal]
  - Overdose [Fatal]
  - Product prescribing error [Unknown]

NARRATIVE: CASE EVENT DATE: 20231010
